FAERS Safety Report 5141575-7 (Version None)
Quarter: 2006Q4

REPORT INFORMATION
  Report Type: 
  Country: None (occurrence: None)
  Receive Date: 20061030
  Receipt Date: 20061030
  Transmission Date: 20070319
  Serious: Yes (Hospitalization)
  Sender: FDA-Public Use
  Company Number: None

PATIENT
  Age: 63 Year
  Sex: Male
  Weight: 70.3 kg

DRUGS (14)
  1. MS CONTIN [Suspect]
     Indication: CANCER PAIN
     Dosage: 60 MG EVERY 8-12 HOURS PO
     Route: 048
     Dates: start: 20060830, end: 20061027
  2. LORTAB [Suspect]
     Indication: CANCER PAIN
     Dosage: 7.5 MG 2 TABS Q 4-6 HRS PO
     Route: 048
     Dates: start: 20060830, end: 20061024
  3. ROBAXIN [Concomitant]
  4. LASIX [Concomitant]
  5. BUSPAR [Concomitant]
  6. CLORAZEPATE [Concomitant]
  7. LOTREL [Concomitant]
  8. BETAXOLOL [Concomitant]
  9. AVANDIA [Concomitant]
  10. GEMCITABINE [Concomitant]
  11. OXAPLATIN [Concomitant]
  12. AVASTIN [Concomitant]
  13. ZOFRAN [Concomitant]
  14. DEXAMETHASONE TAB [Concomitant]

REACTIONS (8)
  - ABDOMINAL TENDERNESS [None]
  - ANOREXIA [None]
  - COLONIC OBSTRUCTION [None]
  - CONSTIPATION [None]
  - ILEUS [None]
  - INTESTINAL OBSTRUCTION [None]
  - NAUSEA [None]
  - WHITE BLOOD CELL COUNT INCREASED [None]
